FAERS Safety Report 4896386-4 (Version None)
Quarter: 2006Q1

REPORT INFORMATION
  Report Type: 
  Country: None (occurrence: None)
  Receive Date: 20060131
  Receipt Date: 20051227
  Transmission Date: 20060701
  Serious: Yes (Death)
  Sender: FDA-Public Use
  Company Number: PHBS2005JP19054

PATIENT
  Age: 75 Year
  Sex: Female

DRUGS (2)
  1. PREDONINE [Suspect]
     Indication: NEPHROTIC SYNDROME
     Dosage: 40 MG/DAY
     Route: 048
     Dates: start: 20050814, end: 20051026
  2. NEORAL [Suspect]
     Indication: NEPHROTIC SYNDROME
     Dosage: 150 MG/DAY
     Route: 048
     Dates: start: 20050917, end: 20051026

REACTIONS (4)
  - HYPOXIA [None]
  - PNEUMOCYSTIS JIROVECI PNEUMONIA [None]
  - PYREXIA [None]
  - RESPIRATORY FAILURE [None]
